FAERS Safety Report 22298050 (Version 1)
Quarter: 2023Q2

REPORT INFORMATION
  Report Type: Spontaneous
  Country: US (occurrence: US)
  Receive Date: 20230509
  Receipt Date: 20230509
  Transmission Date: 20230722
  Serious: Yes (Hospitalization)
  Sender: FDA-Public Use
  Company Number: US-35507-2023-03542

PATIENT

DRUGS (1)
  1. SERTRALINE HYDROCHLORIDE [Suspect]
     Active Substance: SERTRALINE HYDROCHLORIDE
     Indication: Product used for unknown indication
     Dosage: UNK
     Route: 065

REACTIONS (8)
  - Panic attack [Unknown]
  - Dysarthria [Unknown]
  - Poverty of speech [Unknown]
  - Psychogenic seizure [Unknown]
  - Homicidal ideation [Unknown]
  - Emotional disorder [Unknown]
  - Feeling abnormal [Unknown]
  - Product substitution issue [Unknown]
